FAERS Safety Report 13568337 (Version 1)
Quarter: 2017Q2

REPORT INFORMATION
  Report Type: Spontaneous
  Country: US (occurrence: US)
  Receive Date: 20170522
  Receipt Date: 20170522
  Transmission Date: 20170830
  Serious: Yes (Other)
  Sender: FDA-Public Use
  Company Number: US-PFIZER INC-2017177391

PATIENT
  Age: 64 Year
  Sex: Female

DRUGS (1)
  1. XELJANZ [Suspect]
     Active Substance: TOFACITINIB CITRATE
     Indication: RHEUMATOID ARTHRITIS
     Dosage: 5 MG, DAILY
     Dates: start: 20151203

REACTIONS (14)
  - Musculoskeletal stiffness [Unknown]
  - Pain in extremity [Unknown]
  - Sepsis [Unknown]
  - Fatigue [Recovering/Resolving]
  - Weight decreased [Unknown]
  - Swelling [Unknown]
  - Pharyngitis [Unknown]
  - Dysarthria [Unknown]
  - Cerebrovascular accident [Unknown]
  - Nodal osteoarthritis [Unknown]
  - Arthralgia [Recovering/Resolving]
  - Urinary tract infection [Unknown]
  - Gastrointestinal haemorrhage [Unknown]
  - Renal failure [Unknown]
